FAERS Safety Report 21314113 (Version 2)
Quarter: 2022Q4

REPORT INFORMATION
  Report Type: Report from Study
  Country: US (occurrence: US)
  Receive Date: 20220909
  Receipt Date: 20221206
  Transmission Date: 20230113
  Serious: Yes (Death)
  Sender: FDA-Public Use
  Company Number: US-ABBVIE-22K-163-4532773-00

PATIENT
  Sex: Male
  Weight: 100 kg

DRUGS (6)
  1. SKYRIZI [Suspect]
     Active Substance: RISANKIZUMAB-RZAA
     Indication: Psoriasis
     Dosage: STRENGTH: 150MG
     Route: 058
     Dates: start: 20210621, end: 20220613
  2. LISINOPRIL [Concomitant]
     Active Substance: LISINOPRIL
     Indication: Hypertension
     Dosage: 10MG PILL, STRENGTH: 10MG
     Route: 048
     Dates: start: 20210222, end: 20220613
  3. TEKTURNA [Concomitant]
     Active Substance: ALISKIREN HEMIFUMARATE
     Indication: Product used for unknown indication
  4. NORVASC [Concomitant]
     Active Substance: AMLODIPINE BESYLATE
     Indication: Product used for unknown indication
  5. DOXYCYCLINE HYCLATE [Concomitant]
     Active Substance: DOXYCYCLINE HYCLATE
     Indication: Bacterial infection
     Dosage: 100MG PILL,  STRENGTH: 100MG
     Route: 048
     Dates: start: 20211006, end: 20220613
  6. OTEZLA [Concomitant]
     Active Substance: APREMILAST
     Indication: Psoriasis
     Dosage: 30MG PILL, STRENGTH: 30MG
     Route: 048
     Dates: start: 20171211, end: 20220613

REACTIONS (5)
  - Arteriosclerosis [Fatal]
  - Hepatomegaly [Unknown]
  - Hypertension [Fatal]
  - Cardiovascular disorder [Fatal]
  - Hepatic steatosis [Unknown]
